FAERS Safety Report 6381619-8 (Version None)
Quarter: 2009Q3

REPORT INFORMATION
  Report Type: 
  Country: None (occurrence: None)
  Receive Date: 20090930
  Receipt Date: 20070625
  Transmission Date: 20100115
  Serious: Yes (Hospitalization, Other)
  Sender: FDA-Public Use
  Company Number: US-ASTRAZENECA-2006UW22376

PATIENT
  Age: 12023 Day
  Sex: Female
  Weight: 105.7 kg

DRUGS (27)
  1. SEROQUEL [Suspect]
     Indication: INSOMNIA
     Dosage: 100 MG TO 200 MG
     Route: 048
     Dates: start: 20000101, end: 20060801
  2. SEROQUEL [Suspect]
     Indication: EMOTIONAL DISORDER
     Dosage: 100 MG TO 200 MG
     Route: 048
     Dates: start: 20000101, end: 20060801
  3. SEROQUEL [Suspect]
     Indication: DEPRESSION
     Dosage: 100 MG TO 200 MG
     Route: 048
     Dates: start: 20000101, end: 20060801
  4. SEROQUEL [Suspect]
     Indication: AFFECTIVE DISORDER
     Dosage: 100 MG TO 200 MG
     Route: 048
     Dates: start: 20000101, end: 20060801
  5. SEROQUEL [Suspect]
     Dosage: 25-200 MG
     Route: 048
     Dates: start: 20050421, end: 20060814
  6. SEROQUEL [Suspect]
     Dosage: 25-200 MG
     Route: 048
     Dates: start: 20050421, end: 20060814
  7. SEROQUEL [Suspect]
     Dosage: 25-200 MG
     Route: 048
     Dates: start: 20050421, end: 20060814
  8. SEROQUEL [Suspect]
     Dosage: 25-200 MG
     Route: 048
     Dates: start: 20050421, end: 20060814
  9. LEXAPRO [Concomitant]
  10. KLONOPIN [Concomitant]
     Indication: ANXIETY
     Dates: start: 20060814
  11. KLONOPIN [Concomitant]
     Indication: SLEEP DISORDER
     Dates: start: 20060814
  12. EFFEXOR XR/EFFEXOR XL [Concomitant]
     Dosage: 150-300 MG
     Route: 048
     Dates: start: 20040406
  13. AMBIEN/AMBIEN CR [Concomitant]
     Dosage: 10-12.5 MG
     Dates: start: 20050519
  14. XANAX [Concomitant]
     Indication: ANXIETY
     Dosage: 0.25 MG EVERY 6-8 HOURS
     Dates: start: 20040406
  15. AVALIDE [Concomitant]
     Dosage: 150/12.5 MG, DAILY
     Dates: start: 20040406
  16. GLUCOTROL XL [Concomitant]
     Dosage: 10 MG, TWO TIMES A DAY
     Dates: start: 20050211
  17. METFORMIN HCL ER [Concomitant]
     Dates: start: 20050101
  18. HYDROXYZINE PAM [Concomitant]
     Dates: start: 20050101
  19. FUROSEMIDE [Concomitant]
     Dates: start: 20050101
  20. HYDROCODONE BITARTRATE AND ACETAMINOPHEN [Concomitant]
     Dosage: 7.5/650
     Dates: start: 20050101
  21. PRILOSEC OTC [Concomitant]
     Dates: start: 20050101
  22. AVANDIA [Concomitant]
     Dosage: 4-8 MG
     Dates: start: 20060101
  23. LISINOPRIL AND HYDROCHLOROTHIAZIDE [Concomitant]
     Dosage: 20-12.5
     Dates: start: 20060101
  24. REMERON [Concomitant]
     Dates: start: 20050101
  25. COLDEC D [Concomitant]
     Dates: start: 20060101
  26. PROMETHAZINE W/ CODEINE [Concomitant]
     Dates: start: 20060101
  27. CLONIDINE HCL [Concomitant]
     Dates: start: 20060101

REACTIONS (5)
  - DIABETES MELLITUS [None]
  - DIABETES MELLITUS INADEQUATE CONTROL [None]
  - DIABETIC NEPHROPATHY [None]
  - HYPERGLYCAEMIA [None]
  - TYPE 2 DIABETES MELLITUS [None]
